FAERS Safety Report 8207761-4 (Version None)
Quarter: 2012Q1

REPORT INFORMATION
  Report Type: 
  Country: None (occurrence: None)
  Receive Date: 20120313
  Receipt Date: 20120313
  Transmission Date: 20120608
  Serious: Yes (Hospitalization)
  Sender: FDA-Public Use
  Company Number: None

PATIENT
  Sex: Female
  Weight: 55 kg

DRUGS (3)
  1. ETOPOSIDE [Suspect]
     Dosage: 15.7 MG
  2. CYTARABINE [Suspect]
     Dosage: 157 MG
  3. DAUNORUBICIN HCL [Suspect]
     Dosage: 80 MG

REACTIONS (6)
  - DISSEMINATED INTRAVASCULAR COAGULATION [None]
  - PULMONARY OEDEMA [None]
  - HYPOTENSION [None]
  - TUMOUR LYSIS SYNDROME [None]
  - DYSPNOEA [None]
  - CONTINUOUS HAEMODIAFILTRATION [None]
